FAERS Safety Report 5322148-X (Version None)
Quarter: 2007Q2

REPORT INFORMATION
  Report Type: 
  Country: None (occurrence: None)
  Receive Date: 20070511
  Receipt Date: 20070501
  Transmission Date: 20071010
  Serious: Yes (Other)
  Sender: FDA-Public Use
  Company Number: US-AMGEN-US212540

PATIENT
  Sex: Female
  Weight: 86.4 kg

DRUGS (9)
  1. ENBREL [Suspect]
     Indication: PSORIATIC ARTHROPATHY
     Route: 058
     Dates: start: 20030101, end: 20070227
  2. ENBREL [Suspect]
     Indication: PSORIASIS
  3. LEXAPRO [Concomitant]
  4. PREMARIN [Concomitant]
  5. TRAZODONE HYDROCHLORIDE [Concomitant]
     Route: 065
  6. PRAVACHOL [Concomitant]
     Route: 065
  7. CYMBALTA [Concomitant]
     Route: 065
  8. LORAZEPAM [Concomitant]
     Route: 065
  9. RANITIDINE HYDROCHLORIDE [Concomitant]
     Route: 065

REACTIONS (6)
  - EPSTEIN-BARR VIRUS TEST POSITIVE [None]
  - INFLUENZA [None]
  - PULMONARY CALCIFICATION [None]
  - PULMONARY GRANULOMA [None]
  - PYREXIA [None]
  - TUBERCULOSIS SKIN TEST POSITIVE [None]
